FAERS Safety Report 10172983 (Version 1)
Quarter: 2014Q2

REPORT INFORMATION
  Report Type: Spontaneous
  Country: US (occurrence: None)
  Receive Date: 20140514
  Receipt Date: 20140514
  Transmission Date: 20141212
  Serious: Yes (Hospitalization)
  Sender: FDA-Public Use
  Company Number: None

PATIENT
  Age: 66 Year
  Sex: Male
  Weight: 105 kg

DRUGS (11)
  1. CEFTAZIDIME [Suspect]
     Indication: OSTEOMYELITIS
     Route: 042
  2. VANCOMYCIN [Suspect]
     Indication: OSTEOMYELITIS
     Route: 042
  3. OMEGA-3 POLYUNSATGURATED FATTY ACIDS [Concomitant]
  4. GABAPENTIN [Concomitant]
  5. PERCOCET [Concomitant]
  6. INSULIN [Concomitant]
  7. BENADRYL [Concomitant]
  8. METRONIDAZOLE [Concomitant]
  9. METFORMIN [Concomitant]
  10. GLIPIZIDE XL [Concomitant]
  11. GEMFIBROZIL [Concomitant]

REACTIONS (5)
  - Pyrexia [None]
  - Rash [None]
  - Eosinophilia [None]
  - Renal failure acute [None]
  - Renal tubular necrosis [None]
